FAERS Safety Report 8111027-0 (Version None)
Quarter: 2012Q1

REPORT INFORMATION
  Report Type: 
  Country: None (occurrence: None)
  Receive Date: 20120203
  Receipt Date: 20110223
  Transmission Date: 20120608
  Serious: No
  Sender: FDA-Public Use
  Company Number: US-GLAXOSMITHKLINE-A0915081A

PATIENT
  Age: 33 Year
  Sex: Female

DRUGS (4)
  1. TOPAMAX [Concomitant]
  2. SYNTHROID [Concomitant]
  3. LAMICTAL [Suspect]
     Indication: BIPOLAR DISORDER
     Dosage: 200MG PER DAY
     Route: 048
     Dates: start: 20101101
  4. ZOLOFT [Concomitant]

REACTIONS (2)
  - RASH [None]
  - DERMATITIS CONTACT [None]
